FAERS Safety Report 5411560-6 (Version None)
Quarter: 2007Q3

REPORT INFORMATION
  Report Type: 
  Country: None (occurrence: None)
  Receive Date: 20070810
  Receipt Date: 20070730
  Transmission Date: 20080115
  Serious: Yes (Other)
  Sender: FDA-Public Use
  Company Number: SE-PFIZER INC-2007047448

PATIENT
  Sex: Female
  Weight: 87 kg

DRUGS (1)
  1. CHAMPIX [Suspect]
     Indication: SMOKING CESSATION THERAPY
     Route: 048
     Dates: start: 20070528, end: 20070709

REACTIONS (6)
  - BACK PAIN [None]
  - CHILLS [None]
  - PAIN [None]
  - POLLAKIURIA [None]
  - PYELONEPHRITIS [None]
  - THIRST [None]
